FAERS Safety Report 20727093 (Version 2)
Quarter: 2022Q2

REPORT INFORMATION
  Report Type: Report from Study
  Country: DE (occurrence: None)
  Receive Date: 20220419
  Receipt Date: 20220429
  Transmission Date: 20220721
  Serious: Yes (Hospitalization)
  Sender: FDA-Public Use
  Company Number: DE-ROCHE-2984374

PATIENT
  Age: 63 Year
  Sex: Male
  Weight: 69 kg

DRUGS (7)
  1. OBINUTUZUMAB [Suspect]
     Active Substance: OBINUTUZUMAB
     Indication: Follicular lymphoma
     Dosage: ON 30/DEC/2021, 14/JAN/2022, 18/FEB/2022, 14/MAR/2022  RECEIVED MOST RECENT DOSE OF OBINUTUZUMAB PRI
     Route: 042
     Dates: start: 20211216, end: 20220114
  2. COPANLISIB [Suspect]
     Active Substance: COPANLISIB
     Indication: Follicular lymphoma
     Dosage: ON 16/DEC/2021, 23/DEC/2021, 11/FEB/2022, 28/FEB/2022, 25/MAR/2022 RECEIVED MOST RECENT DOSE OF COPA
     Route: 041
     Dates: start: 20211216, end: 20220211
  3. FLECAINIDE [Concomitant]
     Active Substance: FLECAINIDE
     Indication: Cardiomegaly
  4. METOPROLOL SUCCINATE [Concomitant]
     Active Substance: METOPROLOL SUCCINATE
     Indication: Cardiomegaly
  5. DABIGATRAN [Concomitant]
     Active Substance: DABIGATRAN
     Indication: Cardiomegaly
  6. PANTOPRAZOLE [Concomitant]
     Active Substance: PANTOPRAZOLE
     Indication: Gastritis
  7. DIMENHYDRINATE [Concomitant]
     Active Substance: DIMENHYDRINATE
     Dates: start: 20211217

REACTIONS (4)
  - Pyrexia [Recovered/Resolved]
  - Hypertension [Recovered/Resolved]
  - Muscle twitching [Recovered/Resolved]
  - Hypertension [Recovered/Resolved]

NARRATIVE: CASE EVENT DATE: 20211216
